FAERS Safety Report 6590878-8 (Version None)
Quarter: 2010Q1

REPORT INFORMATION
  Report Type: 
  Country: None (occurrence: None)
  Receive Date: 20100219
  Receipt Date: 20100209
  Transmission Date: 20100710
  Serious: Yes (Hospitalization)
  Sender: FDA-Public Use
  Company Number: US-MERCK-1002USA01549

PATIENT
  Age: 71 Year
  Sex: Female

DRUGS (1)
  1. INVANZ [Suspect]
     Route: 065
     Dates: start: 20091013, end: 20100113

REACTIONS (1)
  - HEPATITIS C [None]
